FAERS Safety Report 8342568-9 (Version None)
Quarter: 2012Q2

REPORT INFORMATION
  Report Type: 
  Country: None (occurrence: None)
  Receive Date: 20120508
  Receipt Date: 20120430
  Transmission Date: 20120825
  Serious: No
  Sender: FDA-Public Use
  Company Number: US-BIOGENIDEC-2012BI015216

PATIENT
  Age: 41 Year
  Sex: Female

DRUGS (1)
  1. TYSABRI [Suspect]
     Indication: MULTIPLE SCLEROSIS
     Route: 042
     Dates: start: 20120330

REACTIONS (7)
  - HEMIPARESIS [None]
  - CYANOSIS [None]
  - FEELING COLD [None]
  - MEMORY IMPAIRMENT [None]
  - ERYTHEMA [None]
  - HYPERSOMNIA [None]
  - URTICARIA [None]
